FAERS Safety Report 24229987 (Version 1)
Quarter: 2024Q3

REPORT INFORMATION
  Report Type: Spontaneous
  Country: JP (occurrence: JP)
  Receive Date: 20240820
  Receipt Date: 20240820
  Transmission Date: 20241017
  Serious: Yes (Death, Other)
  Sender: PFIZER
  Company Number: JP-PFIZER INC-202400238149

PATIENT
  Age: 3 Decade
  Sex: Female

DRUGS (2)
  1. METHOTREXATE SODIUM [Suspect]
     Active Substance: METHOTREXATE SODIUM
     Indication: Leukaemia
     Dosage: 4100 MG ONCE, TOTAL OF TWICE
     Route: 042
  2. LEUCOVORIN [Concomitant]
     Active Substance: LEUCOVORIN\LEUCOVORIN CALCIUM
     Indication: Leukaemia

REACTIONS (12)
  - Leukoencephalopathy [Fatal]
  - Pancreatitis [Unknown]
  - Cerebral infarction [Unknown]
  - Pyrexia [Unknown]
  - Headache [Unknown]
  - Feeding disorder [Unknown]
  - Physical deconditioning [Unknown]
  - Hypoaesthesia [Unknown]
  - Gait disturbance [Unknown]
  - Abdominal pain [Unknown]
  - Nausea [Unknown]
  - Fatigue [Unknown]
